FAERS Safety Report 5721811-6 (Version None)
Quarter: 2008Q2

REPORT INFORMATION
  Report Type: 
  Country: None (occurrence: None)
  Receive Date: 20080429
  Receipt Date: 20070604
  Transmission Date: 20081010
  Serious: No
  Sender: FDA-Public Use
  Company Number: US-ASTRAZENECA-2007UW13450

PATIENT
  Age: 89 Year
  Sex: Female
  Weight: 50.8 kg

DRUGS (4)
  1. NEXIUM [Suspect]
     Indication: DYSPEPSIA
     Route: 048
     Dates: start: 20070531
  2. ATENOLOL [Concomitant]
  3. PLAVIX [Concomitant]
  4. ISOSORBIDE DINITRATE [Concomitant]

REACTIONS (1)
  - DYSPEPSIA [None]
